FAERS Safety Report 9800160 (Version 1)
Quarter: 2014Q1

REPORT INFORMATION
  Report Type: Spontaneous
  Country: JP (occurrence: JP)
  Receive Date: 20140106
  Receipt Date: 20140106
  Transmission Date: 20141002
  Serious: Yes (Other)
  Sender: FDA-Public Use
  Company Number: JP-ABBVIE-14P-087-1186522-00

PATIENT
  Age: 48 Year
  Sex: Male
  Weight: 58 kg

DRUGS (8)
  1. SEVOFLURANE [Suspect]
     Indication: ANAESTHESIA
     Route: 055
     Dates: start: 20130719, end: 20130719
  2. REMIFENTANIL [Suspect]
     Indication: PRODUCT USED FOR UNKNOWN INDICATION
     Dates: start: 20130719, end: 20130719
  3. DIPRIVAN [Suspect]
     Indication: ANAESTHESIA
     Route: 042
     Dates: start: 20130719, end: 20130719
  4. ANAPEINE [Suspect]
     Indication: ANAESTHESIA
     Dosage: INTRACUTANEOUS, SUBFASCIAL
     Route: 058
     Dates: start: 20130719, end: 20130719
  5. EPHEDRINE HYDROCHLORIDE [Concomitant]
     Indication: VASOPRESSIVE THERAPY
     Dosage: 50 MG X 4
     Route: 042
     Dates: start: 20130719, end: 20130719
  6. NEOSYNESIN [Concomitant]
     Indication: VASOPRESSIVE THERAPY
     Dosage: 200 MCG X 2
     Route: 042
     Dates: start: 20130719, end: 20130719
  7. BOSMIN [Concomitant]
     Indication: VASOPRESSIVE THERAPY
     Route: 058
     Dates: start: 20130719, end: 20130719
  8. SOLU-CORTEF [Concomitant]
     Indication: ANAPHYLAXIS TREATMENT
     Route: 042
     Dates: start: 20130719, end: 20130719

REACTIONS (2)
  - Generalised erythema [Recovered/Resolved]
  - Hypotension [Recovered/Resolved]
